FAERS Safety Report 5576791-3 (Version None)
Quarter: 2007Q4

REPORT INFORMATION
  Report Type: 
  Country: None (occurrence: None)
  Receive Date: 20071228
  Receipt Date: 20071219
  Transmission Date: 20080405
  Serious: Yes (Hospitalization)
  Sender: FDA-Public Use
  Company Number: DE-ABBOTT-07P-062-0427528-00

PATIENT
  Age: 31 Year
  Sex: Female

DRUGS (2)
  1. ERGENYL CHRONO [Suspect]
     Indication: EPILEPSY
  2. UNKNOWN MEDICATION [Concomitant]
     Indication: DRUG USE FOR UNKNOWN INDICATION

REACTIONS (5)
  - BLOOD ELECTROLYTES DECREASED [None]
  - CONFUSIONAL STATE [None]
  - DIARRHOEA [None]
  - URINE BARBITURATES [None]
  - VOMITING [None]
